FAERS Safety Report 8551585-5 (Version None)
Quarter: 2012Q3

REPORT INFORMATION
  Report Type: 
  Country: None (occurrence: None)
  Receive Date: 20120730
  Receipt Date: 20120723
  Transmission Date: 20120928
  Serious: Yes (Hospitalization)
  Sender: FDA-Public Use
  Company Number: US-BRISTOL-MYERS SQUIBB COMPANY-16798969

PATIENT
  Age: 76 Year
  Sex: Female

DRUGS (2)
  1. COUMADIN [Suspect]
     Route: 065
  2. LETAIRIS [Suspect]
     Indication: PULMONARY HYPERTENSION
     Dosage: ONGOING,TAB
     Route: 048
     Dates: start: 20100319

REACTIONS (1)
  - TRANSFUSION [None]
